FAERS Safety Report 18931792 (Version 1)
Quarter: 2021Q1

REPORT INFORMATION
  Report Type: Spontaneous
  Country: US (occurrence: US)
  Receive Date: 20210223
  Receipt Date: 20210223
  Transmission Date: 20210420
  Serious: No
  Sender: FDA-Public Use
  Company Number: US-IGSA-BIG0011595

PATIENT
  Age: 77 Year
  Sex: Male
  Weight: 78 kg

DRUGS (17)
  1. BRILINTA [Concomitant]
     Active Substance: TICAGRELOR
  2. LOPRESSOR [Concomitant]
     Active Substance: METOPROLOL TARTRATE
  3. RANOLAZINE. [Concomitant]
     Active Substance: RANOLAZINE
  4. ELIQUIS [Concomitant]
     Active Substance: APIXABAN
     Dosage: 5 MILLIGRAM
  5. CLAVIX                             /00984601/ [Concomitant]
     Active Substance: CLARITHROMYCIN
  6. FOLIC ACID. [Concomitant]
     Active Substance: FOLIC ACID
  7. PROLASTIN?C LIQUID [Suspect]
     Active Substance: .ALPHA.1-PROTEINASE INHIBITOR HUMAN
     Indication: ALPHA-1 ANTITRYPSIN DEFICIENCY
     Dosage: 4680 MILLIGRAM, Q.WK.
     Route: 042
     Dates: start: 20201002, end: 20201002
  8. PROLASTIN?C LIQUID [Suspect]
     Active Substance: .ALPHA.1-PROTEINASE INHIBITOR HUMAN
     Dosage: 4680 MILLIGRAM, Q.WK.
     Route: 042
     Dates: start: 20181026
  9. EZETIMIBE. [Concomitant]
     Active Substance: EZETIMIBE
  10. LASIX [Concomitant]
     Active Substance: FUROSEMIDE
  11. INCRUSE ELLIPTA [Concomitant]
     Active Substance: UMECLIDINIUM BROMIDE
     Dosage: UNK
  12. VITAMIN C [Concomitant]
     Active Substance: ASCORBIC ACID
  13. DONEPEZIL. [Concomitant]
     Active Substance: DONEPEZIL
  14. NORCO [Concomitant]
     Active Substance: ACETAMINOPHEN\HYDROCODONE BITARTRATE
  15. RANEXA [Concomitant]
     Active Substance: RANOLAZINE
  16. CALCIUM [Concomitant]
     Active Substance: CALCIUM
  17. CARBIDOPA ANHYDROUS. [Concomitant]
     Active Substance: CARBIDOPA ANHYDROUS

REACTIONS (2)
  - Skin discolouration [Not Recovered/Not Resolved]
  - Peripheral swelling [Not Recovered/Not Resolved]

NARRATIVE: CASE EVENT DATE: 20201002
